FAERS Safety Report 7999082-X (Version None)
Quarter: 2011Q4

REPORT INFORMATION
  Report Type: 
  Country: None (occurrence: None)
  Receive Date: 20111221
  Receipt Date: 20111215
  Transmission Date: 20120403
  Serious: Yes (Disabling)
  Sender: FDA-Public Use
  Company Number: ES-ABBOTT-11P-144-0883572-00

PATIENT
  Age: 50 Year
  Sex: Female

DRUGS (1)
  1. HUMIRA [Suspect]
     Indication: RHEUMATOID ARTHRITIS
     Route: 058
     Dates: start: 20110801, end: 20110901

REACTIONS (5)
  - PAIN IN EXTREMITY [None]
  - VASCULITIS [None]
  - PARAESTHESIA [None]
  - GAIT DISTURBANCE [None]
  - ECCHYMOSIS [None]
